FAERS Safety Report 18571642 (Version 2)
Quarter: 2020Q4

REPORT INFORMATION
  Report Type: Spontaneous
  Country: KE (occurrence: KE)
  Receive Date: 20201202
  Receipt Date: 20201218
  Transmission Date: 20210114
  Serious: Yes (Death, Hospitalization)
  Sender: FDA-Public Use
  Company Number: KE-ASTRAZENECA-2020SF58652

PATIENT
  Age: 35 Year
  Sex: Male
  Weight: 119.4 kg

DRUGS (10)
  1. TRAMADOL. [Concomitant]
     Active Substance: TRAMADOL
  2. PANTOCID [Concomitant]
  3. PERFALGAN [Concomitant]
     Active Substance: ACETAMINOPHEN
  4. EMITINO [Concomitant]
  5. INSULIN [Concomitant]
     Active Substance: INSULIN NOS
     Dosage: 80 UNITS
     Route: 051
  6. GLUCOPHAGE [Concomitant]
     Active Substance: METFORMIN HYDROCHLORIDE
  7. TRIPLIXAM [Concomitant]
     Active Substance: AMLODIPINE BESYLATE\INDAPAMIDE\PERINDOPRIL ARGININE
     Indication: HYPERTENSION
  8. IV VITAMIN B COMPLEX [Concomitant]
  9. FORXIGA [Suspect]
     Active Substance: DAPAGLIFLOZIN
     Route: 048
  10. CLEXANE [Concomitant]
     Active Substance: ENOXAPARIN SODIUM

REACTIONS (3)
  - Diabetic ketoacidosis [Not Recovered/Not Resolved]
  - Respiratory failure [Fatal]
  - COVID-19 [Not Recovered/Not Resolved]

NARRATIVE: CASE EVENT DATE: 20201128
